FAERS Safety Report 23802282 (Version 1)
Quarter: 2024Q2

REPORT INFORMATION
  Report Type: Spontaneous
  Country: TW (occurrence: TW)
  Receive Date: 20240501
  Receipt Date: 20240501
  Transmission Date: 20240715
  Serious: Yes (Hospitalization, Other)
  Sender: FDA-Public Use
  Company Number: TW-UNITED THERAPEUTICS-UNT-2024-011176

PATIENT

DRUGS (1)
  1. REMODULIN [Suspect]
     Active Substance: TREPROSTINIL
     Indication: Pulmonary arterial hypertension
     Dosage: UNK, CONTINUING
     Route: 058

REACTIONS (5)
  - Pulmonary artery aneurysm [Recovered/Resolved]
  - Circulatory collapse [Recovered/Resolved]
  - Pulmonary oedema [Recovered/Resolved]
  - Post procedural complication [Recovered/Resolved]
  - Left ventricular dysfunction [Recovered/Resolved]
